FAERS Safety Report 25628688 (Version 3)
Quarter: 2025Q3

REPORT INFORMATION
  Report Type: Spontaneous
  Country: US (occurrence: US)
  Receive Date: 20250731
  Receipt Date: 20250814
  Transmission Date: 20251020
  Serious: Yes (Other)
  Sender: BAUSCH AND LOMB
  Company Number: US-BAUSCHBL-2025BNL013116

PATIENT
  Age: 87 Year
  Sex: Female

DRUGS (2)
  1. MIEBO [Suspect]
     Active Substance: PERFLUOROHEXYLOCTANE
     Indication: Corneal disorder
     Dosage: PATIENT USING PRODUCT 4 TIMES A DAY, STARTED PRODUCT 9 MONTHS AGO, NOW SHE USES IT TWO TIMES A DAY
     Route: 047
     Dates: start: 202409, end: 2025
  2. MIEBO [Suspect]
     Active Substance: PERFLUOROHEXYLOCTANE
     Indication: Product use in unapproved indication
     Dosage: NOW SHE USES IT TWO TIMES A DAY
     Route: 047
     Dates: start: 202503

REACTIONS (4)
  - Corneal transplant [Unknown]
  - Inability to afford medication [Unknown]
  - Product prescribing issue [Unknown]
  - Product use issue [Unknown]

NARRATIVE: CASE EVENT DATE: 20250601
